FAERS Safety Report 20907811 (Version 3)
Quarter: 2023Q2

REPORT INFORMATION
  Report Type: Spontaneous
  Country: IN (occurrence: IN)
  Receive Date: 20220602
  Receipt Date: 20230503
  Transmission Date: 20230722
  Serious: Yes (Life-Threatening, Hospitalization, Other)
  Sender: FDA-Public Use
  Company Number: IN-MLMSERVICE-20220525-3577522-1

PATIENT
  Age: 33 Year
  Sex: Female

DRUGS (6)
  1. PREDNISOLONE [Suspect]
     Active Substance: PREDNISOLONE
     Indication: Infertility female
     Dosage: 10 MG, 2X/DAY (12 HOURS)
     Dates: start: 202012
  2. PREDNISOLONE [Suspect]
     Active Substance: PREDNISOLONE
     Dosage: 10 MG, 2X/DAY (12 HOURS)
     Dates: start: 202008
  3. ESTRADIOL [Suspect]
     Active Substance: ESTRADIOL
     Indication: Infertility female
     Dosage: 2 MG, 3X/DAY (8 H)
     Dates: start: 202008
  4. ESTRADIOL [Suspect]
     Active Substance: ESTRADIOL
     Dosage: 2 MG, 3X/DAY (8 H)
     Dates: start: 202012
  5. DYDROGESTERONE [Concomitant]
     Active Substance: DYDROGESTERONE
     Indication: Infertility female
     Dosage: 10 MG X 1 MONTH
     Dates: start: 202012
  6. DYDROGESTERONE [Concomitant]
     Active Substance: DYDROGESTERONE
     Dosage: 10 MG X 1 MONTH
     Dates: start: 202008

REACTIONS (4)
  - Pancreatitis acute [Unknown]
  - Ileus [Unknown]
  - Hypertriglyceridaemia [Unknown]
  - Pancreatic toxicity [Unknown]

NARRATIVE: CASE EVENT DATE: 20200101
